FAERS Safety Report 18228040 (Version 1)
Quarter: 2020Q3

REPORT INFORMATION
  Report Type: Report from Study
  Country: None (occurrence: CO)
  Receive Date: 20200903
  Receipt Date: 20200903
  Transmission Date: 20201103
  Serious: Yes (Hospitalization, Other)
  Sender: FDA-Public Use
  Company Number: CO-ABBVIE-20K-036-3505107-00

PATIENT
  Sex: Female
  Weight: 65 kg

DRUGS (4)
  1. ZEMPLAR [Suspect]
     Active Substance: PARICALCITOL
     Indication: CHRONIC KIDNEY DISEASE
  2. FERROUS SULFATE. [Concomitant]
     Active Substance: FERROUS SULFATE
     Indication: HAEMOGLOBIN DECREASED
  3. ZEMPLAR [Suspect]
     Active Substance: PARICALCITOL
     Indication: HYPERPARATHYROIDISM SECONDARY
     Route: 048
     Dates: start: 20170310
  4. KETOSTERIL [Concomitant]
     Active Substance: AMINO ACIDS, SOURCE UNSPECIFIED
     Indication: RENAL FAILURE
     Route: 048

REACTIONS (16)
  - Abdominal discomfort [Recovering/Resolving]
  - Haemoglobin decreased [Recovering/Resolving]
  - Intracranial aneurysm [Recovering/Resolving]
  - Hypertension [Recovering/Resolving]
  - Dyspepsia [Recovered/Resolved]
  - Nervous system disorder [Recovering/Resolving]
  - Gastrointestinal inflammation [Recovering/Resolving]
  - Poor quality sleep [Unknown]
  - Blood pressure increased [Recovered/Resolved]
  - Osteoporosis [Recovering/Resolving]
  - Dyspepsia [Recovering/Resolving]
  - Flatulence [Recovering/Resolving]
  - Haemoglobin abnormal [Recovering/Resolving]
  - Blood uric acid abnormal [Recovering/Resolving]
  - Pain in extremity [Recovering/Resolving]
  - Nervousness [Unknown]

NARRATIVE: CASE EVENT DATE: 2018
